FAERS Safety Report 6314119-1 (Version None)
Quarter: 2009Q3

REPORT INFORMATION
  Report Type: 
  Country: None (occurrence: None)
  Receive Date: 20090818
  Receipt Date: 20090810
  Transmission Date: 20100115
  Serious: Yes (Other)
  Sender: FDA-Public Use
  Company Number: PHHY2009BR33335

PATIENT
  Age: 79 Year
  Sex: Male

DRUGS (1)
  1. EXELON [Suspect]
     Indication: NEURODEGENERATIVE DISORDER
     Dosage: 9 MG
     Route: 062

REACTIONS (3)
  - AGGRESSION [None]
  - OESOPHAGEAL CANDIDIASIS [None]
  - PNEUMONIA [None]
